FAERS Safety Report 4769969-X (Version None)
Quarter: 2005Q3

REPORT INFORMATION
  Report Type: 
  Country: None (occurrence: None)
  Receive Date: 20050914
  Receipt Date: 20050914
  Transmission Date: 20060218
  Serious: Yes (Other)
  Sender: FDA-Public Use
  Company Number: None

PATIENT
  Age: 64 Year
  Sex: Male
  Weight: 67.1324 kg

DRUGS (11)
  1. PREDNISONE [Suspect]
     Indication: TRAUMATIC ARTHRITIS
     Dosage: 20 MG PO TID X 3 D , BID X 3D
     Route: 048
  2. WARFARIN SODIUM [Concomitant]
  3. LASIX [Concomitant]
  4. LIPITOR [Concomitant]
  5. COREG [Concomitant]
  6. COZAAR [Concomitant]
  7. LANOXIN [Concomitant]
  8. GLYBURIDE [Concomitant]
  9. METFORMIN [Concomitant]
  10. ASPIRIN [Concomitant]
  11. GEMFIBROZIL [Concomitant]

REACTIONS (1)
  - INTERNATIONAL NORMALISED RATIO INCREASED [None]
